FAERS Safety Report 7118199-5 (Version None)
Quarter: 2010Q4

REPORT INFORMATION
  Report Type: 
  Country: None (occurrence: None)
  Receive Date: 20101123
  Receipt Date: 20100324
  Transmission Date: 20110411
  Serious: No
  Sender: FDA-Public Use
  Company Number: US-MYLANLABS-2010S1005136

PATIENT
  Age: 72 Year
  Sex: Male
  Weight: 90.72 kg

DRUGS (4)
  1. DOXAZOSIN MESYLATE [Suspect]
     Indication: DYSURIA
     Dates: start: 20100201, end: 20100301
  2. DOXAZOSIN MESYLATE [Suspect]
     Dates: start: 20100301
  3. REVLIMID [Concomitant]
     Indication: NEOPLASM MALIGNANT
     Dosage: 21 DAYS ON AND 1 WEEK OFF
     Dates: start: 20080101
  4. DEXAMETHASONE [Concomitant]
     Dosage: 10 ^PILLS^ WEEKLY

REACTIONS (7)
  - ASTHENIA [None]
  - DIZZINESS [None]
  - DRUG EFFECT DECREASED [None]
  - DRY MOUTH [None]
  - DYSURIA [None]
  - FORMICATION [None]
  - SOMNOLENCE [None]
